FAERS Safety Report 10731278 (Version 6)
Quarter: 2016Q4

REPORT INFORMATION
  Report Type: Report from Study
  Country: ES (occurrence: ES)
  Receive Date: 20150122
  Receipt Date: 20161223
  Transmission Date: 20170206
  Serious: Yes (Life-Threatening, Hospitalization, Other)
  Sender: FDA-Public Use
  Company Number: PHHO2015ES000767

PATIENT
  Age: 49 Year
  Sex: Male
  Weight: 95 kg

DRUGS (17)
  1. PROGRAF [Suspect]
     Active Substance: TACROLIMUS\TACROLIMUS ANHYDROUS
     Dosage: 1 MG, BID
     Route: 048
     Dates: start: 20150118, end: 20150120
  2. METILPREDNISOLONE [Concomitant]
     Active Substance: METHYLPREDNISOLONE
     Indication: LIVER TRANSPLANT
     Dosage: 40 MG, QD
     Route: 042
     Dates: start: 20150110
  3. MIDAZOLAM [Concomitant]
     Active Substance: MIDAZOLAM\MIDAZOLAM HYDROCHLORIDE
     Indication: HYPNOTHERAPY
     Dosage: 10 ML/QH
     Route: 042
     Dates: start: 20150110
  4. AMPHOTERICIN B. [Concomitant]
     Active Substance: AMPHOTERICIN B
     Indication: PROPHYLAXIS
     Dosage: 25 MG (NEBULIZATION), Q48H
     Route: 065
     Dates: start: 20150112
  5. MYCOPHENOLATE MOFETIL. [Concomitant]
     Active Substance: MYCOPHENOLATE MOFETIL
     Indication: LIVER TRANSPLANT
     Dosage: 1000 MG, BID
     Route: 048
     Dates: start: 20150110
  6. MORPHINE [Concomitant]
     Active Substance: MORPHINE
     Indication: ANALGESIC THERAPY
     Dosage: 1 ML/QH
     Route: 042
     Dates: start: 20150110
  7. FUROSEMIDE. [Suspect]
     Active Substance: FUROSEMIDE
     Indication: OLIGURIA
     Dosage: 40 MG, Q8H
     Route: 042
     Dates: start: 20150110
  8. PROGRAF [Suspect]
     Active Substance: TACROLIMUS\TACROLIMUS ANHYDROUS
     Indication: LIVER TRANSPLANT
     Dosage: 1 MG (ENTERAL), BID
     Route: 048
     Dates: start: 20150114, end: 20150116
  9. NORADRENALIN [Suspect]
     Active Substance: NOREPINEPHRINE\NOREPINEPHRINE BITARTRATE
     Indication: SUPPORTIVE CARE
     Dosage: 24 ML, QH
     Route: 042
     Dates: start: 20150110
  10. VANCOMYCIN [Suspect]
     Active Substance: VANCOMYCIN
     Indication: PYREXIA
     Dosage: 1 G, ONCE/SINGLE
     Route: 042
     Dates: start: 20150116, end: 20150116
  11. PANTOPRAZOLE [Concomitant]
     Active Substance: PANTOPRAZOLE SODIUM
     Indication: PROPHYLAXIS
     Dosage: 40 MG, QD
     Route: 042
     Dates: start: 20150110
  12. NORADRENALIN [Suspect]
     Active Substance: NOREPINEPHRINE\NOREPINEPHRINE BITARTRATE
     Indication: SUPPORTIVE CARE
  13. AMPHOTERICIN B. [Concomitant]
     Active Substance: AMPHOTERICIN B
     Dosage: 200 MG, BID
     Route: 042
     Dates: start: 20150112
  14. NO TREATMENT RECEIVED [Suspect]
     Active Substance: UNSPECIFIED INGREDIENT
     Indication: LIVER TRANSPLANT
     Dosage: NO TREATMENT
     Route: 065
  15. PROPOFOL. [Concomitant]
     Active Substance: PROPOFOL
     Indication: HYPNOTHERAPY
     Dosage: UNK
     Route: 042
     Dates: start: 20150110
  16. FLUCONAZOL [Concomitant]
     Active Substance: FLUCONAZOLE
     Indication: PROPHYLAXIS
     Dosage: 200 MG, QD
     Route: 042
     Dates: start: 20150115
  17. OMEPRAZOLE. [Concomitant]
     Active Substance: OMEPRAZOLE
     Indication: PROPHYLAXIS AGAINST GASTROINTESTINAL ULCER
     Dosage: 20 MG, BID
     Route: 048
     Dates: start: 20150119

REACTIONS (4)
  - Renal failure [Recovered/Resolved]
  - Intra-abdominal haemorrhage [Recovered/Resolved]
  - Seizure [Recovered/Resolved]
  - Postoperative wound infection [Recovered/Resolved]

NARRATIVE: CASE EVENT DATE: 20150110
